FAERS Safety Report 26066606 (Version 1)
Quarter: 2025Q4

REPORT INFORMATION
  Report Type: Spontaneous
  Country: US (occurrence: US)
  Receive Date: 20251119
  Receipt Date: 20251119
  Transmission Date: 20260118
  Serious: No
  Sender: NOVO NORDISK
  Company Number: US-NOVOPROD-1471757

PATIENT
  Age: 76 Year
  Sex: Female

DRUGS (4)
  1. NOVOLOG [Suspect]
     Active Substance: INSULIN ASPART
     Indication: Type 2 diabetes mellitus
     Dosage: 4 IU, QD
     Route: 058
     Dates: start: 20250122
  2. NOVOLOG [Suspect]
     Active Substance: INSULIN ASPART
     Dosage: 10 TO 12 UNITS, QD
  3. TART CHERRY [Concomitant]
     Indication: Gout
     Dosage: UNK
  4. BASAGLAR [Concomitant]
     Active Substance: INSULIN GLARGINE
     Indication: Product used for unknown indication
     Dosage: UNK

REACTIONS (3)
  - Limb injury [Recovering/Resolving]
  - Pain [Recovered/Resolved]
  - Diabetes mellitus inadequate control [Unknown]

NARRATIVE: CASE EVENT DATE: 20250501
